FAERS Safety Report 13666637 (Version 1)
Quarter: 2017Q2

REPORT INFORMATION
  Report Type: Spontaneous
  Country: US (occurrence: US)
  Receive Date: 20170619
  Receipt Date: 20170619
  Transmission Date: 20170830
  Serious: No
  Sender: FDA-Public Use
  Company Number: US-ROCHE-1472291

PATIENT
  Sex: Male

DRUGS (10)
  1. XELODA [Suspect]
     Active Substance: CAPECITABINE
     Indication: COLON CANCER
     Route: 048
     Dates: start: 20130816
  2. AMLODIPINE BESYLATE. [Concomitant]
     Active Substance: AMLODIPINE BESYLATE
  3. FLUDROCORTISONE [Concomitant]
     Active Substance: FLUDROCORTISONE
  4. FINASTERIDE. [Concomitant]
     Active Substance: FINASTERIDE
  5. DESMOPRESSIN [Concomitant]
     Active Substance: DESMOPRESSIN
  6. LEXAPRO [Concomitant]
     Active Substance: ESCITALOPRAM OXALATE
  7. LUMIGAN [Concomitant]
     Active Substance: BIMATOPROST
  8. HYDROCORTISONE. [Concomitant]
     Active Substance: HYDROCORTISONE
  9. POTASSIUM CHLORIDE. [Concomitant]
     Active Substance: POTASSIUM CHLORIDE
  10. ANDROGEL [Concomitant]
     Active Substance: TESTOSTERONE

REACTIONS (1)
  - Peripheral swelling [Unknown]
